FAERS Safety Report 10893098 (Version 2)
Quarter: 2015Q1

REPORT INFORMATION
  Report Type: Spontaneous
  Country: FI (occurrence: FI)
  Receive Date: 20150306
  Receipt Date: 20150319
  Transmission Date: 20150721
  Serious: Yes (Hospitalization)
  Sender: FDA-Public Use
  Company Number: PHHY2015FI022392

PATIENT
  Sex: Male

DRUGS (2)
  1. VALPROATE SODIUM. [Suspect]
     Active Substance: VALPROATE SODIUM
     Indication: EPILEPSY
     Dosage: 500 MG, BID
     Route: 065
  2. VALPROATE SODIUM. [Suspect]
     Active Substance: VALPROATE SODIUM
     Dosage: 100 DF, ONCE/SINGLE
     Route: 065

REACTIONS (11)
  - Epilepsy [Recovered/Resolved]
  - Brain oedema [Recovered/Resolved]
  - Sinus tachycardia [Recovered/Resolved]
  - Areflexia [Recovered/Resolved]
  - Pneumonia aspiration [Recovered/Resolved]
  - Dyskinesia [Unknown]
  - Loss of consciousness [Recovered/Resolved]
  - Drug level increased [Recovered/Resolved]
  - Muscle twitching [Recovered/Resolved]
  - Hypernatraemia [Recovered/Resolved]
  - Toxicity to various agents [Recovered/Resolved]
